FAERS Safety Report 4934848-1 (Version None)
Quarter: 2006Q1

REPORT INFORMATION
  Report Type: 
  Country: None (occurrence: None)
  Receive Date: 20060302
  Receipt Date: 20060223
  Transmission Date: 20060701
  Serious: No
  Sender: FDA-Public Use
  Company Number: FR_051007280

PATIENT
  Age: 64 Year
  Sex: Male
  Weight: 71 kg

DRUGS (9)
  1. PEMETREXED (PEMETREXED) VIAL [Suspect]
     Indication: NON-SMALL CELL LUNG CANCER
     Dosage: 500 MG/M2, OTHER, INTRAVENOUS
     Route: 042
     Dates: start: 20050901
  2. FOLIC ACID [Concomitant]
  3. VITAMIN B12 [Concomitant]
  4. DEXAMETHASONE [Concomitant]
  5. PARACETAMOL W/TRAMADOL (PARACETAMOL, TRAMADOL) [Concomitant]
  6. EFFERALGAN CODEINE (CODEINE PHOSPHATE, PARACETAMOL) [Concomitant]
  7. BENZODIAZEPINE DERIVATIVES [Concomitant]
  8. CALDINE (LACIDIPINE) [Concomitant]
  9. BEFIZAL (BEZAFIBRATE) [Concomitant]

REACTIONS (2)
  - CYTOLYTIC HEPATITIS [None]
  - HEPATOCELLULAR DAMAGE [None]
